FAERS Safety Report 5262949-X (Version None)
Quarter: 2007Q1

REPORT INFORMATION
  Report Type: 
  Country: None (occurrence: None)
  Receive Date: 20070312
  Receipt Date: 20070226
  Transmission Date: 20070707
  Serious: Yes (Hospitalization, Other)
  Sender: FDA-Public Use
  Company Number: JP-SHR-JP-2005-018530

PATIENT
  Age: 71 Year
  Sex: Female
  Weight: 48 kg

DRUGS (16)
  1. FLUDARA [Suspect]
     Indication: CHRONIC LYMPHOCYTIC LEUKAEMIA
     Dosage: 30 MG, CYCLE X 5D
     Route: 041
     Dates: start: 20050509, end: 20050513
  2. FLUDARA [Suspect]
     Dosage: 30 MG, CYCLE X 5D
     Route: 041
     Dates: start: 20050602, end: 20050606
  3. FLUDARA [Suspect]
     Dosage: 30 MG, CYCLE X 5D
     Route: 041
     Dates: start: 20050630, end: 20050704
  4. FLUDARA [Suspect]
     Dosage: 30 MG, CYCLE X 5D
     Route: 041
     Dates: start: 20050802, end: 20050806
  5. DIFLUCAN [Concomitant]
     Indication: FUNGAL INFECTION
     Dosage: 200 MG, 1X/DAY
     Route: 048
     Dates: start: 20050817, end: 20050902
  6. MARZULENE S [Concomitant]
     Dosage: 2 G, 1X/DAY
     Route: 048
     Dates: start: 20050817
  7. EMPYNASE P [Concomitant]
     Dosage: 54 KIU, 1X/DAY
     Route: 048
     Dates: start: 20050817, end: 20050902
  8. CLARITHROMYCIN [Concomitant]
     Indication: BRONCHITIS
     Dosage: 200 MG, 1X/DAY
     Route: 048
     Dates: start: 20050817
  9. BAKTAR [Concomitant]
     Indication: INFECTION PROPHYLAXIS
     Dosage: 1 G, 1X/DAY
     Route: 048
     Dates: start: 20050817
  10. THEOLONG [Concomitant]
     Indication: BRONCHIECTASIS
     Dosage: 200 MG, 1X/DAY
     Route: 048
     Dates: start: 20050817, end: 20050902
  11. SENNOSIDE A+B [Concomitant]
     Indication: CONSTIPATION
     Dosage: 12 MG, 1X/DAY
     Route: 048
     Dates: start: 20050817, end: 20050902
  12. SINGULAIR [Concomitant]
     Indication: ASTHMA
     Dosage: 10 MG, 1X/DAY
     Route: 048
     Dates: start: 20050817, end: 20050902
  13. PARIET [Concomitant]
     Indication: REFLUX OESOPHAGITIS
     Dosage: 10 MG, 1X/DAY
     Route: 048
     Dates: start: 20050817
  14. MOBIC [Concomitant]
     Dosage: 10 MG, 1X/DAY
     Route: 048
     Dates: start: 20050817, end: 20050902
  15. VENOGLOBULIN [Concomitant]
     Indication: IMMUNODEFICIENCY
     Dosage: 5 G, 1X/DAY
     Route: 041
     Dates: start: 20050802, end: 20050802
  16. HUSCODE [Concomitant]
     Indication: COUGH
     Dosage: 12 ML, 1X/DAY
     Route: 048
     Dates: start: 20050817, end: 20050823

REACTIONS (11)
  - ANAEMIA HAEMOLYTIC AUTOIMMUNE [None]
  - BLOOD PRESSURE DECREASED [None]
  - CARDIAC FAILURE CONGESTIVE [None]
  - COLD SWEAT [None]
  - DISSEMINATED INTRAVASCULAR COAGULATION [None]
  - DYSPNOEA [None]
  - HEPATIC FUNCTION ABNORMAL [None]
  - MALAISE [None]
  - OEDEMA PERIPHERAL [None]
  - SHOCK [None]
  - SOMNOLENCE [None]
